FAERS Safety Report 10216553 (Version 1)
Quarter: 2014Q2

REPORT INFORMATION
  Report Type: Spontaneous
  Country: BR (occurrence: BR)
  Receive Date: 20140604
  Receipt Date: 20140604
  Transmission Date: 20141212
  Serious: Yes (Other)
  Sender: FDA-Public Use
  Company Number: BR-GALDERMA-BR14001950

PATIENT
  Age: 52 Year
  Sex: Female
  Weight: 58 kg

DRUGS (1)
  1. PLIAGLIS [Suspect]
     Indication: LOCAL ANAESTHESIA
     Route: 061
     Dates: start: 20140515, end: 20140515

REACTIONS (2)
  - Hyperaemia [Recovered/Resolved]
  - Eyelid oedema [Recovered/Resolved]
